FAERS Safety Report 7279651-5 (Version None)
Quarter: 2011Q1

REPORT INFORMATION
  Report Type: 
  Country: None (occurrence: None)
  Receive Date: 20110203
  Receipt Date: 20110203
  Transmission Date: 20110831
  Serious: Yes (Hospitalization)
  Sender: FDA-Public Use
  Company Number: None

PATIENT
  Sex: Female
  Weight: 125.45 kg

DRUGS (13)
  1. OXYCONTIN [Concomitant]
  2. PRINIVIL [Concomitant]
  3. NEURONTIN [Concomitant]
  4. COLESTIPOL HYDROCHLORIDE [Concomitant]
  5. OXYCODONE HCL [Concomitant]
  6. RITALIN [Concomitant]
  7. CARBOPLATIN [Suspect]
     Dosage: 580 MG
  8. TENORMIN [Concomitant]
  9. COMPAZINE [Concomitant]
  10. LACTINEX [Concomitant]
  11. ULTRAM [Concomitant]
  12. TAXOL [Suspect]
     Dosage: 350 MG
  13. GLUCOTROL XL [Concomitant]

REACTIONS (19)
  - SUPRAVENTRICULAR TACHYCARDIA [None]
  - BLOOD CALCIUM DECREASED [None]
  - ASTHENIA [None]
  - HYPOTENSION [None]
  - NEUTROPENIA [None]
  - BLOOD GLUCOSE INCREASED [None]
  - BLOOD ALKALINE PHOSPHATASE INCREASED [None]
  - WHITE BLOOD CELL COUNT DECREASED [None]
  - VAGINAL HAEMORRHAGE [None]
  - NAUSEA [None]
  - BLOOD CHLORIDE DECREASED [None]
  - HAEMOGLOBIN DECREASED [None]
  - VOMITING [None]
  - HYPOPHAGIA [None]
  - ASPARTATE AMINOTRANSFERASE INCREASED [None]
  - DEEP VEIN THROMBOSIS [None]
  - THROMBOCYTOPENIA [None]
  - RENAL FAILURE ACUTE [None]
  - HAEMATOCRIT DECREASED [None]
